FAERS Safety Report 25449172 (Version 2)
Quarter: 2025Q3

REPORT INFORMATION
  Report Type: Report from Study
  Country: EU (occurrence: EU)
  Receive Date: 20250618
  Receipt Date: 20250728
  Transmission Date: 20251020
  Serious: Yes (Other)
  Sender: AUROBINDO
  Company Number: EU-BAUSCHBL-2025BNL009383

PATIENT
  Age: 51 Year
  Sex: Male

DRUGS (2)
  1. CEFUROXIME [Suspect]
     Active Substance: CEFUROXIME
     Indication: Prophylaxis
     Route: 031
  2. CEFUROXIME [Suspect]
     Active Substance: CEFUROXIME

REACTIONS (1)
  - Ocular toxicity [Not Recovered/Not Resolved]
